FAERS Safety Report 6428914-1 (Version None)
Quarter: 2009Q4

REPORT INFORMATION
  Report Type: 
  Country: None (occurrence: None)
  Receive Date: 20091102
  Receipt Date: 20091022
  Transmission Date: 20100525
  Serious: Yes (Other)
  Sender: FDA-Public Use
  Company Number: 232257J09USA

PATIENT
  Age: 42 Year
  Sex: Female

DRUGS (7)
  1. REBIF [Suspect]
     Indication: MULTIPLE SCLEROSIS
     Dosage: 44 MCG, 3 IN 1 WEEKS, SUBCUTANEOUS
     Route: 058
     Dates: start: 20081112
  2. PREDNISONE [Suspect]
     Indication: MULTIPLE SCLEROSIS RELAPSE
     Dosage: ORAL
     Route: 048
     Dates: start: 20090801, end: 20090101
  3. BENICAR [Concomitant]
  4. SYNTHROID [Concomitant]
  5. PROVIGIL (MODAFINAL) [Concomitant]
  6. CALCIUM WITH VITAMIN D (CALCIUM WITH VITAMIN D) [Concomitant]
  7. MULTIVITAMIN [Concomitant]

REACTIONS (6)
  - CHILLS [None]
  - DYSPNOEA [None]
  - MULTIPLE SCLEROSIS RELAPSE [None]
  - PALPITATIONS [None]
  - RESTLESSNESS [None]
  - VENTRICULAR TACHYCARDIA [None]
